FAERS Safety Report 7029878-2 (Version None)
Quarter: 2010Q4

REPORT INFORMATION
  Report Type: 
  Country: None (occurrence: None)
  Receive Date: 20101006
  Receipt Date: 20101004
  Transmission Date: 20110411
  Serious: No
  Sender: FDA-Public Use
  Company Number: US-BIOGENIDEC-2010BI034117

PATIENT
  Age: 28 Year
  Sex: Male

DRUGS (1)
  1. AVONEX [Suspect]
     Indication: MULTIPLE SCLEROSIS
     Route: 030
     Dates: start: 20100930

REACTIONS (5)
  - BLOOD POTASSIUM DECREASED [None]
  - DYSPNOEA [None]
  - INFLUENZA LIKE ILLNESS [None]
  - SPEECH DISORDER [None]
  - TREMOR [None]
